FAERS Safety Report 9859006 (Version 3)
Quarter: 2014Q2

REPORT INFORMATION
  Report Type: Spontaneous
  Country: US (occurrence: US)
  Receive Date: 20140131
  Receipt Date: 20140626
  Transmission Date: 20141212
  Serious: Yes (Other)
  Sender: FDA-Public Use
  Company Number: US-PFIZER INC-2014028106

PATIENT
  Age: 58 Year
  Sex: Female

DRUGS (17)
  1. SPIRONOLACTONE [Concomitant]
     Dosage: 25 MG, DAILY
     Dates: start: 20061126, end: 20130909
  2. VALTREX [Concomitant]
     Indication: ANTIVIRAL TREATMENT
     Dosage: 1 G, 3X/DAY
     Dates: start: 20050709, end: 20080527
  3. LIPITOR [Suspect]
     Indication: LOW DENSITY LIPOPROTEIN INCREASED
     Dosage: 10 MG, DAILY
     Route: 048
     Dates: start: 1998
  4. LIPITOR [Suspect]
     Indication: CARDIOVASCULAR EVENT PROPHYLAXIS
     Dosage: 20 MG, DAILY
     Route: 048
  5. LIPITOR [Suspect]
     Indication: CARDIOVASCULAR DISORDER
     Dosage: 40 MG, DAILY
     Route: 048
     Dates: end: 2010
  6. LIPITOR [Suspect]
     Indication: CARDIAC DISORDER
  7. LIPITOR [Suspect]
     Indication: CARDIAC FAILURE
  8. AMOXICILLIN [Concomitant]
     Indication: ANTIBIOTIC THERAPY
     Dosage: 500 MG, 2X/DAY AS NEEDED
     Dates: start: 20051219, end: 20131202
  9. AZITHROMYCIN [Concomitant]
     Indication: ANTIBIOTIC THERAPY
     Dosage: 250 MG, AS DIRECTED
     Dates: start: 20060106, end: 20121106
  10. BENZONATATE [Concomitant]
     Indication: COUGH
     Dosage: 100 MG, 3X/DAY
     Dates: start: 20060106, end: 20071214
  11. HYDROCODONE [Concomitant]
     Indication: ANALGESIC THERAPY
     Dosage: 5/325MG, 10/325 MG, 7.5/325MG, 5/500MG 1 TO 2 TABLETS EVERY 6 HOURS AS NEEDED
     Dates: start: 20050718, end: 20130806
  12. IBUPROFEN [Concomitant]
     Indication: ANALGESIC THERAPY
     Dosage: 800 MG, 3X/DAY
     Dates: start: 20051122, end: 20120924
  13. IBUPROFEN [Concomitant]
     Indication: INFLAMMATION
  14. LOVAZA [Concomitant]
     Indication: NUTRITIONAL SUPPLEMENTATION
     Dosage: 1 G, DAILY
     Dates: start: 20070630, end: 20131202
  15. NAPROXEN [Concomitant]
     Indication: ANTIINFLAMMATORY THERAPY
     Dosage: 500 MG, EVERY MORNING OR TWICE DAILY
     Dates: start: 20050320, end: 20110514
  16. PENLAC [Concomitant]
     Indication: ANTIFUNGAL TREATMENT
     Dosage: UNK
     Route: 061
     Dates: start: 20060712, end: 20090718
  17. SPIRONOLACTONE [Concomitant]
     Indication: DIURETIC THERAPY
     Dosage: 12.5 MG, DAILY, (25 MG HALF TABLET DAILY)
     Dates: start: 20000218, end: 20010203

REACTIONS (1)
  - Type 2 diabetes mellitus [Not Recovered/Not Resolved]
